FAERS Safety Report 25598040 (Version 1)
Quarter: 2025Q3

REPORT INFORMATION
  Report Type: Spontaneous
  Country: EU (occurrence: EU)
  Receive Date: 20250723
  Receipt Date: 20250723
  Transmission Date: 20251020
  Serious: Yes (Hospitalization)
  Sender: MYLAN
  Company Number: None

PATIENT
  Age: 74 Year
  Sex: Female
  Weight: 63 kg

DRUGS (12)
  1. CANDESARTAN [Suspect]
     Active Substance: CANDESARTAN
     Indication: Hypertension
     Dosage: 4 MILLIGRAM, QD (28 TABLET)
     Dates: start: 20241215, end: 20250421
  2. CANDESARTAN [Suspect]
     Active Substance: CANDESARTAN
     Dosage: 4 MILLIGRAM, QD (28 TABLET)
     Route: 048
     Dates: start: 20241215, end: 20250421
  3. CANDESARTAN [Suspect]
     Active Substance: CANDESARTAN
     Dosage: 4 MILLIGRAM, QD (28 TABLET)
     Route: 048
     Dates: start: 20241215, end: 20250421
  4. CANDESARTAN [Suspect]
     Active Substance: CANDESARTAN
     Dosage: 4 MILLIGRAM, QD (28 TABLET)
     Dates: start: 20241215, end: 20250421
  5. FUROSEMIDE [Suspect]
     Active Substance: FUROSEMIDE
     Indication: Hypertension
     Dosage: 80 MILLIGRAM, QD (40MG 1-1-0)
     Dates: start: 20250227, end: 20250421
  6. FUROSEMIDE [Suspect]
     Active Substance: FUROSEMIDE
     Dosage: 80 MILLIGRAM, QD (40MG 1-1-0)
     Route: 048
     Dates: start: 20250227, end: 20250421
  7. FUROSEMIDE [Suspect]
     Active Substance: FUROSEMIDE
     Dosage: 80 MILLIGRAM, QD (40MG 1-1-0)
     Route: 048
     Dates: start: 20250227, end: 20250421
  8. FUROSEMIDE [Suspect]
     Active Substance: FUROSEMIDE
     Dosage: 80 MILLIGRAM, QD (40MG 1-1-0)
     Dates: start: 20250227, end: 20250421
  9. VANCOMYCIN [Suspect]
     Active Substance: VANCOMYCIN
     Indication: Endocarditis
     Dosage: 1 G CADA 8 H
     Dates: start: 20250419, end: 20250421
  10. VANCOMYCIN [Suspect]
     Active Substance: VANCOMYCIN
     Indication: Staphylococcal bacteraemia
     Dosage: 1 G CADA 8 H
     Route: 042
     Dates: start: 20250419, end: 20250421
  11. VANCOMYCIN [Suspect]
     Active Substance: VANCOMYCIN
     Dosage: 1 G CADA 8 H
     Route: 042
     Dates: start: 20250419, end: 20250421
  12. VANCOMYCIN [Suspect]
     Active Substance: VANCOMYCIN
     Dosage: 1 G CADA 8 H
     Dates: start: 20250419, end: 20250421

REACTIONS (1)
  - Acute kidney injury [Recovering/Resolving]

NARRATIVE: CASE EVENT DATE: 20250421
